FAERS Safety Report 18043676 (Version 1)
Quarter: 2020Q3

REPORT INFORMATION
  Report Type: Spontaneous
  Country: US (occurrence: US)
  Receive Date: 20200717
  Receipt Date: 20200717
  Transmission Date: 20201103
  Serious: No
  Sender: FDA-Public Use
  Company Number: None

PATIENT
  Age: 59 Year
  Sex: Female

DRUGS (1)
  1. FORTEO [Suspect]
     Active Substance: TERIPARATIDE
     Dosage: ?          OTHER STRENGTH:600/2.4 UG/ML;OTHER DOSE:600/2.4 UG/ML;?
     Route: 058
     Dates: start: 202006

REACTIONS (3)
  - Constipation [None]
  - Asthenia [None]
  - Back pain [None]

NARRATIVE: CASE EVENT DATE: 20200703
